FAERS Safety Report 13235028 (Version 2)
Quarter: 2017Q1

REPORT INFORMATION
  Report Type: Spontaneous
  Country: US (occurrence: US)
  Receive Date: 20170215
  Receipt Date: 20170221
  Transmission Date: 20170428
  Serious: Yes (Other)
  Sender: FDA-Public Use
  Company Number: US-PFIZER INC-2017065932

PATIENT
  Age: 55 Year
  Sex: Female

DRUGS (3)
  1. GEMCITABINE HYDROCHLORIDE. [Suspect]
     Active Substance: GEMCITABINE HYDROCHLORIDE
     Indication: INVASIVE DUCTAL BREAST CARCINOMA
     Dosage: UNK UNK, CYCLIC
  2. CARBOPLATIN. [Suspect]
     Active Substance: CARBOPLATIN
     Indication: INVASIVE DUCTAL BREAST CARCINOMA
     Dosage: UNK, CYCLIC
  3. ACTHAR [Suspect]
     Active Substance: CORTICOTROPIN
     Dosage: ACTH IN GELATIN AT A DOSE OF 80 U/ML BIWEEKLY FOR 12 WEEKS DURATION.
     Route: 058

REACTIONS (4)
  - Condition aggravated [Recovering/Resolving]
  - Myositis [Recovering/Resolving]
  - Skin hyperpigmentation [Not Recovered/Not Resolved]
  - Nail pigmentation [Unknown]
